FAERS Safety Report 10724557 (Version 1)
Quarter: 2015Q1

REPORT INFORMATION
  Report Type: Spontaneous
  Country: US (occurrence: None)
  Receive Date: 20150116
  Receipt Date: 20150116
  Transmission Date: 20150721
  Serious: No
  Sender: FDA-Public Use
  Company Number: None

PATIENT
  Age: 34 Year
  Sex: Female
  Weight: 69.8 kg

DRUGS (1)
  1. TAMOXIFEN [Suspect]
     Active Substance: TAMOXIFEN
     Dates: end: 20150114

REACTIONS (3)
  - Pregnancy test positive [None]
  - Maternal exposure during pregnancy [None]
  - Abortion induced [None]

NARRATIVE: CASE EVENT DATE: 20150105
